FAERS Safety Report 4748206-6 (Version None)
Quarter: 2005Q3

REPORT INFORMATION
  Report Type: 
  Country: None (occurrence: None)
  Receive Date: 20050818
  Receipt Date: 20050809
  Transmission Date: 20060218
  Serious: Yes (Other)
  Sender: FDA-Public Use
  Company Number: GB-BRISTOL-MYERS SQUIBB COMPANY-13075130

PATIENT
  Age: 52 Year
  Sex: Female

DRUGS (6)
  1. METFORMIN HCL [Suspect]
     Indication: DIABETES MELLITUS NON-INSULIN-DEPENDENT
     Route: 048
  2. GLICLAZIDE [Suspect]
     Indication: DIABETES MELLITUS NON-INSULIN-DEPENDENT
     Route: 048
  3. CLOZAPINE [Suspect]
     Route: 048
     Dates: start: 20040930
  4. FERROUS SULFATE TAB [Suspect]
     Indication: IRON DEFICIENCY
     Route: 048
  5. AMISULPRIDE [Concomitant]
  6. CHLORPHENIRAMINE MALEATE [Concomitant]

REACTIONS (1)
  - PAROTID GLAND ENLARGEMENT [None]
